FAERS Safety Report 11569236 (Version 2)
Quarter: 2015Q3

REPORT INFORMATION
  Report Type: Spontaneous
  Country: CN (occurrence: CN)
  Receive Date: 20150929
  Receipt Date: 20150929
  Transmission Date: 20151125
  Serious: Yes (Other)
  Sender: FDA-Public Use
  Company Number: PHHY2015CN115671

PATIENT
  Age: 56 Year
  Sex: Male

DRUGS (2)
  1. MYCOPHENOLIC ACID. [Suspect]
     Active Substance: MYCOPHENOLIC ACID
     Indication: IMMUNE THROMBOCYTOPENIC PURPURA
     Route: 065
  2. PREDNISOLONE. [Suspect]
     Active Substance: PREDNISOLONE
     Indication: IMMUNE THROMBOCYTOPENIC PURPURA
     Route: 065

REACTIONS (14)
  - Fungal infection [Recovered/Resolved]
  - Productive cough [Recovered/Resolved]
  - Brain abscess [Recovered/Resolved]
  - Ileal ulcer [Recovered/Resolved]
  - Crohn^s disease [Recovered/Resolved]
  - Pulmonary mycosis [Recovered/Resolved]
  - Systemic mycosis [Recovered/Resolved]
  - Pyrexia [Recovered/Resolved]
  - Nasopharyngitis [Recovered/Resolved]
  - Lymphopenia [Recovered/Resolved]
  - Facial pain [Recovered/Resolved]
  - Night sweats [Recovered/Resolved]
  - Diarrhoea haemorrhagic [Recovered/Resolved]
  - Product use issue [Unknown]
